FAERS Safety Report 5640661-2 (Version None)
Quarter: 2008Q1

REPORT INFORMATION
  Report Type: 
  Country: None (occurrence: None)
  Receive Date: 20080227
  Receipt Date: 20080214
  Transmission Date: 20080703
  Serious: Yes (Other)
  Sender: FDA-Public Use
  Company Number: ES-AMGEN-UK262043

PATIENT
  Sex: Male
  Weight: 96 kg

DRUGS (11)
  1. NEULASTA [Suspect]
     Indication: CHEMOTHERAPY
     Route: 065
     Dates: start: 20071108
  2. NEUPOGEN [Suspect]
     Indication: CHEMOTHERAPY
     Route: 042
     Dates: start: 20071011
  3. ACETAMINOPHEN [Concomitant]
  4. NOLOTIL /SPA/ [Concomitant]
  5. POLARAMINE [Concomitant]
  6. DOXORUBICIN HYDROCHLORIDE [Concomitant]
     Dates: start: 20071010
  7. BLEOMYCIN [Concomitant]
     Dates: start: 20071010
  8. VINCRISTINE [Concomitant]
     Dates: start: 20071010
  9. DACARBAZINE [Concomitant]
     Dates: start: 20071010
  10. OMEPRAZOLE [Concomitant]
  11. ALMAX [Concomitant]

REACTIONS (7)
  - ABDOMINAL PAIN [None]
  - ABDOMINAL PAIN UPPER [None]
  - BONE PAIN [None]
  - CHEST DISCOMFORT [None]
  - CHEST PAIN [None]
  - GAIT DISTURBANCE [None]
  - INFLUENZA LIKE ILLNESS [None]
